FAERS Safety Report 25610378 (Version 4)
Quarter: 2025Q4

REPORT INFORMATION
  Report Type: Spontaneous
  Country: CA (occurrence: CA)
  Receive Date: 20250728
  Receipt Date: 20251014
  Transmission Date: 20260118
  Serious: Yes (Other)
  Sender: ASTELLAS
  Company Number: CA-ASTELLAS-2025-AER-039666

PATIENT
  Age: 43 Year
  Sex: Male

DRUGS (12)
  1. VYLOY [Suspect]
     Active Substance: ZOLBETUXIMAB-CLZB
     Indication: Gastric cancer
     Dosage: INFUSION (4 HRS), 800MG/M2: 1500 MG
     Route: 042
     Dates: start: 20250715, end: 20250930
  2. DECADRON [Concomitant]
     Active Substance: DEXAMETHASONE
     Indication: Product used for unknown indication
     Route: 048
  3. DILAUDID [Concomitant]
     Active Substance: HYDROMORPHONE HYDROCHLORIDE
     Indication: Product used for unknown indication
     Dosage: AS NEEDED
     Route: 048
  4. IMODIUM [Concomitant]
     Active Substance: LOPERAMIDE HYDROCHLORIDE
     Indication: Diarrhoea
     Dosage: 2 TABLETS (4 MG) AT FIRST SIGN OF DIARRHEA THEN REPEAT 1 TABLET EVERY 4-6 HOURS IF NEEDED; MAX 8 TAB
     Route: 048
  5. NETUPITANT\PALONOSETRON [Concomitant]
     Active Substance: NETUPITANT\PALONOSETRON
     Indication: Product used for unknown indication
     Dosage: 300-0.5 MG CAPSULE; TAKE 1 CAPSULE AS DIRECTED; 1 HOUR PRIOR TO ZOLBETUXIMAB CHEMO
     Route: 048
  6. ZYPREXA [Concomitant]
     Active Substance: OLANZAPINE
     Indication: Nausea
     Dosage: 1 TABLET (2.5 MG) TWICE DAILY AS NEEDED
     Route: 048
  7. ZYPREXA [Concomitant]
     Active Substance: OLANZAPINE
     Dosage: 2 TABLETS (5 MG) 1 HOUR PRIOR TO ZOLBETUXIMAB CHEMOTHERAPY
     Route: 048
  8. ZYPREXA [Concomitant]
     Active Substance: OLANZAPINE
     Dosage: 2 TABLETS (5 MG) AT BEDTIME FOR 3 DAYS STARTING AFTER ZOLBETUXIMAB
     Route: 048
  9. POLYETHYLENE GLYCOL 3350 [Concomitant]
     Active Substance: POLYETHYLENE GLYCOL 3350
     Indication: Product used for unknown indication
     Dosage: 17 G DAILY
     Route: 048
  10. MAGNESIUM [Concomitant]
     Active Substance: MAGNESIUM
     Indication: Product used for unknown indication
     Route: 048
  11. VITAMIN D3 [Concomitant]
     Active Substance: CHOLECALCIFEROL
     Indication: Product used for unknown indication
     Dosage: 1000 UNIT (25 MCG)
     Route: 048
  12. FLUOROURACIL\LEUCOVORIN CALCIUM\OXALIPLATIN [Concomitant]
     Active Substance: FLUOROURACIL\LEUCOVORIN CALCIUM\OXALIPLATIN
     Indication: Product used for unknown indication
     Dosage: ONGOING
     Route: 065

REACTIONS (3)
  - Infusion related reaction [Recovered/Resolved]
  - Salivary hypersecretion [Recovered/Resolved]
  - Gastrooesophageal reflux disease [Recovered/Resolved]

NARRATIVE: CASE EVENT DATE: 20250715
